FAERS Safety Report 7124558-7 (Version None)
Quarter: 2010Q4

REPORT INFORMATION
  Report Type: 
  Country: None (occurrence: None)
  Receive Date: 20101129
  Receipt Date: 20101026
  Transmission Date: 20110411
  Serious: Yes (Other)
  Sender: FDA-Public Use
  Company Number: GB-AMGEN-GBRCT2010001674

PATIENT

DRUGS (12)
  1. ETANERCEPT [Suspect]
     Indication: RHEUMATOID ARTHRITIS
     Dosage: 25 MG, 2 TIMES/WK
     Dates: start: 20050415, end: 20050906
  2. PREDNISOLONE [Concomitant]
     Dosage: UNKNOWN
  3. METHOTREXATE [Concomitant]
     Dosage: UNKNOWN
     Dates: start: 20030612
  4. HYDROXYCHLOROQUINE SULFATE [Concomitant]
     Dosage: UNKNOWN
     Dates: start: 20060321
  5. CO-DYDRAMOL [Concomitant]
     Dosage: UNKNOWN
  6. VENLAFAXINE HYDROCHLORIDE [Concomitant]
     Dosage: UNKNOWN
  7. LISINOPRIL [Concomitant]
     Dosage: UNKNOWN
  8. MELOXICAM [Concomitant]
     Dosage: UNKNOWN
  9. MS CONTIN [Concomitant]
     Dosage: UNKNOWN
  10. OMEPRAZOLE [Concomitant]
     Dosage: UNKNOWN
  11. TRAMADOL HCL [Concomitant]
     Dosage: UNKNOWN
  12. FOLIC ACID [Concomitant]
     Dosage: UNKNOWN

REACTIONS (1)
  - BLADDER CANCER STAGE 0, WITH CANCER IN SITU [None]
